FAERS Safety Report 5042030-5 (Version None)
Quarter: 2006Q2

REPORT INFORMATION
  Report Type: 
  Country: None (occurrence: None)
  Receive Date: 20060630
  Receipt Date: 20060620
  Transmission Date: 20061013
  Serious: Yes (Other)
  Sender: FDA-Public Use
  Company Number: 2006-BP-06985RO

PATIENT
  Sex: 0

DRUGS (1)
  1. DICLOFENAC (DICLOFENAC) [Suspect]

REACTIONS (4)
  - COAGULATION FACTOR DECREASED [None]
  - HEPATITIS [None]
  - ILEUS PARALYTIC [None]
  - RENAL FAILURE ACUTE [None]
